FAERS Safety Report 14262418 (Version 2)
Quarter: 2018Q2

REPORT INFORMATION
  Report Type: Spontaneous
  Country: GB (occurrence: GB)
  Receive Date: 20171208
  Receipt Date: 20180612
  Transmission Date: 20180711
  Serious: Yes (Hospitalization)
  Sender: FDA-Public Use
  Company Number: GB-ACCORD-061758

PATIENT
  Age: 61 Year
  Sex: Male

DRUGS (16)
  1. HALOPERIDOL. [Suspect]
     Active Substance: HALOPERIDOL
     Indication: PRODUCT USED FOR UNKNOWN INDICATION
     Dosage: ORAL OR INTRAMUSCULAR; AS NECESSARY
  2. ATORVASTATIN/ATORVASTATIN CALCIUM [Concomitant]
     Active Substance: ATORVASTATIN CALCIUM
     Dosage: AT NIGHT
  3. PROCYCLIDINE [Suspect]
     Active Substance: PROCYCLIDINE
     Indication: PRODUCT USED FOR UNKNOWN INDICATION
     Dosage: ONCE DAILY AS NECESSARY
  4. DEPIXOL (FLUPENTIXOL DECANOATE) [Suspect]
     Active Substance: FLUPENTIXOL DECANOATE
     Indication: PRODUCT USED FOR UNKNOWN INDICATION
     Dosage: STRENGTH: 100 MG/1ML
  5. SALBUTAMOL [Concomitant]
     Active Substance: ALBUTEROL
     Dosage: PUFFS
     Route: 055
  6. HYOSCINE [Concomitant]
     Active Substance: SCOPOLAMINE
  7. RISPERIDONE. [Suspect]
     Active Substance: RISPERIDONE
     Indication: PRODUCT USED FOR UNKNOWN INDICATION
     Dosage: APPEARS TO BE ON REDUCING COURSE TO REDUCE TO 1MG TWICE DAILY
  8. LORAZEPAM. [Concomitant]
     Active Substance: LORAZEPAM
     Dosage: 1-2MG, ORAL OR INTRAMUSCULAR
  9. LANSOPRAZOLE. [Concomitant]
     Active Substance: LANSOPRAZOLE
  10. ACETYLSALICYLIC ACID [Concomitant]
     Active Substance: ASPIRIN
  11. FLUPENTIXOL [Suspect]
     Active Substance: FLUPENTIXOL
     Indication: PRODUCT USED FOR UNKNOWN INDICATION
     Dates: end: 20170703
  12. MIRTAZAPINE. [Suspect]
     Active Substance: MIRTAZAPINE
     Indication: PRODUCT USED FOR UNKNOWN INDICATION
     Dosage: AT NIGHT
  13. QUETIAPINE DR REDDYS LABS UK [Suspect]
     Active Substance: QUETIAPINE FUMARATE
     Indication: PRODUCT USED FOR UNKNOWN INDICATION
  14. BISOPROLOL [Concomitant]
     Active Substance: BISOPROLOL
  15. SERTRALINE [Suspect]
     Active Substance: SERTRALINE HYDROCHLORIDE
     Indication: PRODUCT USED FOR UNKNOWN INDICATION
  16. AMLODIPINE [Concomitant]
     Active Substance: AMLODIPINE BESYLATE

REACTIONS (3)
  - Acute kidney injury [Unknown]
  - Neuroleptic malignant syndrome [Recovered/Resolved]
  - Rhabdomyolysis [Unknown]

NARRATIVE: CASE EVENT DATE: 20170717
